FAERS Safety Report 7669751-X (Version None)
Quarter: 2011Q3

REPORT INFORMATION
  Report Type: 
  Country: None (occurrence: None)
  Receive Date: 20110808
  Receipt Date: 20110804
  Transmission Date: 20111222
  Serious: Yes (Other)
  Sender: FDA-Public Use
  Company Number: US-ABBOTT-11P-163-0843370-00

PATIENT
  Age: 32 Year
  Sex: Female

DRUGS (8)
  1. ASACOL HD [Concomitant]
     Indication: CROHN'S DISEASE
  2. ALBUTEROL SULFATE AUTOHALER [Concomitant]
     Indication: ASTHMA
  3. OMEPRAZOLE [Concomitant]
     Indication: GASTROOESOPHAGEAL REFLUX DISEASE
  4. VITAMIN D [Concomitant]
     Indication: VITAMIN SUPPLEMENTATION
  5. HUMIRA [Suspect]
     Indication: CROHN'S DISEASE
     Dates: start: 20101201
  6. ENTOCORT EC [Concomitant]
     Indication: CROHN'S DISEASE
  7. DUAL NEBULIZER ALBUTEROL [Concomitant]
     Indication: ASTHMA
  8. ATROVENT [Concomitant]
     Indication: ASTHMA

REACTIONS (7)
  - COUGH [None]
  - ENDOMETRIOSIS [None]
  - PYREXIA [None]
  - INJECTION SITE HAEMORRHAGE [None]
  - GASTROINTESTINAL INFECTION [None]
  - NASOPHARYNGITIS [None]
  - OROPHARYNGEAL PAIN [None]
